FAERS Safety Report 8612105-X (Version None)
Quarter: 2012Q3

REPORT INFORMATION
  Report Type: 
  Country: None (occurrence: None)
  Receive Date: 20120822
  Receipt Date: 20120814
  Transmission Date: 20120928
  Serious: Yes (Other)
  Sender: FDA-Public Use
  Company Number: AU-PURDUE-USA-2012-0091656

PATIENT
  Sex: Female

DRUGS (6)
  1. OPIOIDS [Suspect]
     Indication: PAIN
  2. ANTIDEPRESSANTS [Suspect]
     Indication: PAIN
  3. MUSCLE RELAXANTS [Suspect]
     Indication: PAIN
  4. ANTIEPILEPTICS [Suspect]
     Indication: PAIN
  5. MORPHINE SULFATE [Suspect]
     Indication: PAIN
  6. CORTISONE ACETATE [Suspect]
     Indication: PAIN

REACTIONS (7)
  - DRUG INEFFECTIVE [None]
  - SUICIDAL IDEATION [None]
  - ACTIVITIES OF DAILY LIVING IMPAIRED [None]
  - DRUG DEPENDENCE [None]
  - HYPOAESTHESIA [None]
  - SOMNOLENCE [None]
  - NEGATIVE THOUGHTS [None]
